FAERS Safety Report 11719422 (Version 1)
Quarter: 2015Q4

REPORT INFORMATION
  Report Type: Spontaneous
  Country: US (occurrence: None)
  Receive Date: 20151109
  Receipt Date: 20151109
  Transmission Date: 20160304
  Serious: No
  Sender: FDA-Public Use
  Company Number: None

PATIENT
  Age: 9 Year
  Sex: Male
  Weight: 24.95 kg

DRUGS (1)
  1. EPINEPHINE [Suspect]
     Active Substance: EPINEPHRINE

REACTIONS (2)
  - Device issue [None]
  - Product quality issue [None]

NARRATIVE: CASE EVENT DATE: 20150714
